FAERS Safety Report 6146616-6 (Version None)
Quarter: 2009Q2

REPORT INFORMATION
  Report Type: 
  Country: None (occurrence: None)
  Receive Date: 20090407
  Receipt Date: 20090326
  Transmission Date: 20091009
  Serious: Yes (Hospitalization)
  Sender: FDA-Public Use
  Company Number: DE-PFIZER INC-2009153841

PATIENT

DRUGS (3)
  1. LYRICA [Suspect]
     Indication: NEURALGIA
     Dosage: BETWEEN 600 MG AND 1500 MG PER DAY
     Route: 048
     Dates: start: 20060601, end: 20090309
  2. MORPHIN [Concomitant]
     Indication: NEURALGIA
     Dosage: 20 MG, 3X/DAY
     Route: 048
     Dates: start: 20080809
  3. DOXEPIN [Concomitant]
     Dosage: 25 MG, 1X/DAY
     Dates: start: 20090225

REACTIONS (2)
  - DRUG DEPENDENCE [None]
  - WITHDRAWAL SYNDROME [None]
